FAERS Safety Report 24032029 (Version 1)
Quarter: 2024Q2

REPORT INFORMATION
  Report Type: Spontaneous
  Country: US (occurrence: US)
  Receive Date: 20240630
  Receipt Date: 20240630
  Transmission Date: 20240715
  Serious: Yes (Other)
  Sender: FDA-Public Use
  Company Number: US-DRL-USA-LIT/USA/24/0009321

PATIENT
  Age: 67 Year
  Sex: Male

DRUGS (5)
  1. BUDESONIDE [Suspect]
     Active Substance: BUDESONIDE
     Indication: Colitis microscopic
  2. LOPERAMIDE [Concomitant]
     Active Substance: LOPERAMIDE
     Indication: Colitis microscopic
  3. USTEKINUMAB [Concomitant]
     Active Substance: USTEKINUMAB
     Indication: Colitis microscopic
  4. VEDOLIZUMAB [Concomitant]
     Active Substance: VEDOLIZUMAB
     Indication: Colitis microscopic
  5. RISANKIZUMAB [Concomitant]
     Active Substance: RISANKIZUMAB
     Indication: Colitis microscopic

REACTIONS (1)
  - Drug ineffective for unapproved indication [Unknown]
